FAERS Safety Report 15811985 (Version 1)
Quarter: 2018Q4

REPORT INFORMATION
  Report Type: Spontaneous
  Country: US (occurrence: US)
  Receive Date: 20181214
  Receipt Date: 20181214
  Transmission Date: 20190205
  Serious: No
  Sender: FDA-Public Use
  Company Number: None

PATIENT
  Age: 69 Year
  Sex: Female

DRUGS (1)
  1. SUTENT [Suspect]
     Active Substance: SUNITINIB MALATE
     Indication: RENAL CELL CARCINOMA
     Route: 048
     Dates: start: 20181121

REACTIONS (5)
  - Blister [None]
  - Dysstasia [None]
  - Stomatitis [None]
  - Rash erythematous [None]
  - Pain in extremity [None]

NARRATIVE: CASE EVENT DATE: 20181130
